FAERS Safety Report 19397019 (Version 3)
Quarter: 2022Q1

REPORT INFORMATION
  Report Type: Spontaneous
  Country: US (occurrence: US)
  Receive Date: 20210609
  Receipt Date: 20220317
  Transmission Date: 20220423
  Serious: Yes (Other)
  Sender: FDA-Public Use
  Company Number: US-SA-SAC20210601000297

PATIENT
  Age: 79 Year
  Sex: Female

DRUGS (3)
  1. CAPRELSA [Suspect]
     Active Substance: VANDETANIB
     Indication: Thyroid cancer
     Dosage: 300 MG, QD
     Route: 048
  2. CAPRELSA [Suspect]
     Active Substance: VANDETANIB
     Dosage: 200 MG, QD
     Route: 048
     Dates: start: 20210601
  3. CAPRELSA [Suspect]
     Active Substance: VANDETANIB
     Dosage: 0.5 DF, QD
     Route: 048

REACTIONS (3)
  - Hypothyroidism [Unknown]
  - Diarrhoea [Unknown]
  - Wrong technique in product usage process [Unknown]
